FAERS Safety Report 8232342-6 (Version None)
Quarter: 2012Q1

REPORT INFORMATION
  Report Type: 
  Country: None (occurrence: None)
  Receive Date: 20120323
  Receipt Date: 20120319
  Transmission Date: 20120608
  Serious: Yes (Hospitalization, Congenital Anomaly)
  Sender: FDA-Public Use
  Company Number: US-GLAXOSMITHKLINE-A0951259A

PATIENT
  Sex: Male

DRUGS (8)
  1. PAROXETINE HCL [Suspect]
     Indication: DEPRESSION
     Route: 064
  2. IRON SULFATETHIAMIN COMPOUND TAB [Concomitant]
  3. FIORICET [Concomitant]
     Dates: start: 20040712
  4. TYLENOL [Concomitant]
  5. VITAMIN AND MINERAL PRENATAL SUPPLEMENT W/ FOLIC ACID CAP [Concomitant]
  6. ZANTAC [Concomitant]
  7. PAXIL CR [Suspect]
     Indication: DEPRESSION
     Route: 064
  8. REGLAN [Concomitant]

REACTIONS (5)
  - COARCTATION OF THE AORTA [None]
  - CONGENITAL AORTIC VALVE INCOMPETENCE [None]
  - ATRIAL SEPTAL DEFECT [None]
  - FOETAL EXPOSURE DURING PREGNANCY [None]
  - VENTRICULAR SEPTAL DEFECT [None]
